FAERS Safety Report 12284405 (Version 3)
Quarter: 2016Q4

REPORT INFORMATION
  Report Type: Spontaneous
  Country: CA (occurrence: CA)
  Receive Date: 20160420
  Receipt Date: 20161031
  Transmission Date: 20170207
  Serious: Yes (Other)
  Sender: FDA-Public Use
  Company Number: CA-BEH-2016061357

PATIENT
  Age: 28 Year
  Sex: Female
  Weight: 49.5 kg

DRUGS (12)
  1. CYTOGAM [Suspect]
     Active Substance: HUMAN CYTOMEGALOVIRUS IMMUNE GLOBULIN
     Indication: PRODUCT USED FOR UNKNOWN INDICATION
     Route: 042
     Dates: start: 20160325, end: 20160326
  2. PREDNISONE. [Concomitant]
     Active Substance: PREDNISONE
     Route: 065
  3. PANTOPRAZOLE [Concomitant]
     Active Substance: PANTOPRAZOLE SODIUM
     Route: 065
  4. FERROUS FUMARATE [Concomitant]
     Active Substance: FERROUS FUMARATE
     Route: 065
  5. COLCHICINE. [Concomitant]
     Active Substance: COLCHICINE
     Route: 065
  6. SEPTRA [Concomitant]
     Active Substance: SULFAMETHOXAZOLE\TRIMETHOPRIM
     Dosage: 400/80
     Route: 065
  7. PRIVIGEN [Suspect]
     Active Substance: HUMAN IMMUNOGLOBULIN G
     Indication: PRODUCT USED FOR UNKNOWN INDICATION
     Route: 042
     Dates: start: 20160322, end: 20160323
  8. VITAMIN D [Concomitant]
     Active Substance: CHOLECALCIFEROL
     Route: 065
  9. RAMIPRIL. [Concomitant]
     Active Substance: RAMIPRIL
     Route: 065
  10. AZATHIOPRINE. [Concomitant]
     Active Substance: AZATHIOPRINE
     Route: 065
  11. PLAQUENIL [Concomitant]
     Active Substance: HYDROXYCHLOROQUINE SULFATE
     Route: 065
  12. CALCIUM [Concomitant]
     Active Substance: CALCIUM
     Route: 065

REACTIONS (4)
  - Delayed haemolytic transfusion reaction [Not Recovered/Not Resolved]
  - Haemoglobin decreased [Not Recovered/Not Resolved]
  - Coombs direct test positive [Not Recovered/Not Resolved]
  - Anti A antibody positive [Not Recovered/Not Resolved]

NARRATIVE: CASE EVENT DATE: 20160326
